FAERS Safety Report 9642489 (Version 1)
Quarter: 2013Q4

REPORT INFORMATION
  Report Type: Spontaneous
  Country: US (occurrence: US)
  Receive Date: 20131024
  Receipt Date: 20131024
  Transmission Date: 20140711
  Serious: No
  Sender: FDA-Public Use
  Company Number: US-B.I. PHARMACEUTICALS,INC./RIDGEFIELD-2013-BI-32886BP

PATIENT
  Age: 89 Year
  Sex: Male

DRUGS (6)
  1. PRADAXA [Suspect]
     Indication: ATRIAL FIBRILLATION
     Dosage: 150 MG
     Route: 048
  2. AMIODARONE [Concomitant]
     Route: 048
  3. LOSARTAN [Concomitant]
     Route: 048
  4. METOPROLOL [Concomitant]
     Route: 048
  5. ALLOPURINOL [Concomitant]
     Indication: GOUT
     Route: 048
  6. HYDRALAZINE [Concomitant]
     Route: 048

REACTIONS (2)
  - Glossodynia [Recovered/Resolved]
  - Hypoaesthesia oral [Not Recovered/Not Resolved]
